FAERS Safety Report 6779593-5 (Version None)
Quarter: 2010Q2

REPORT INFORMATION
  Report Type: 
  Country: None (occurrence: None)
  Receive Date: 20100618
  Receipt Date: 20100608
  Transmission Date: 20101027
  Serious: Yes (Other)
  Sender: FDA-Public Use
  Company Number: A0865630A

PATIENT
  Age: 20 Year
  Sex: Female

DRUGS (1)
  1. AVAMYS [Suspect]
     Route: 045
     Dates: start: 20100401, end: 20100501

REACTIONS (2)
  - NASAL SEPTUM PERFORATION [None]
  - SINUS OPERATION [None]
